FAERS Safety Report 19690590 (Version 2)
Quarter: 2021Q3

REPORT INFORMATION
  Report Type: Spontaneous
  Country: EG (occurrence: EG)
  Receive Date: 20210812
  Receipt Date: 20210903
  Transmission Date: 20211014
  Serious: Yes (Other)
  Sender: FDA-Public Use
  Company Number: EG-PFIZER INC-202100980893

PATIENT
  Age: 48 Year
  Sex: Male

DRUGS (10)
  1. CANCIDAS [Concomitant]
     Active Substance: CASPOFUNGIN ACETATE
     Dosage: 50 MG MAINTENANCE
  2. SELOKENZOC [Concomitant]
     Active Substance: METOPROLOL SUCCINATE
     Indication: MYOCARDIAL ISCHAEMIA
  3. VFEND [Suspect]
     Active Substance: VORICONAZOLE
     Indication: FUNGAL INFECTION
     Dosage: 200 MG, TWICE DAILY
     Dates: start: 20210626
  4. HYDROCORTISONE. [Concomitant]
     Active Substance: HYDROCORTISONE
     Indication: ADRENAL INSUFFICIENCY
     Dosage: UNK
  5. ELECTROLYTE [CHLORINE;CITRIC ACID;GLUCOSE;POTASSIUM;SODIUM] [Concomitant]
     Indication: MALNUTRITION
  6. DALACIN C [CLINDAMYCIN HYDROCHLORIDE] [Concomitant]
     Active Substance: CLINDAMYCIN HYDROCHLORIDE
     Indication: LIVER ABSCESS
     Dosage: 900 MG EVERY 8 HOURS
     Route: 042
     Dates: start: 20210628, end: 20210725
  7. ELECTROLYTE [CHLORINE;CITRIC ACID;GLUCOSE;POTASSIUM;SODIUM] [Concomitant]
     Indication: ELECTROLYTE IMBALANCE
     Dosage: UNK
  8. ELECTROLYTE [CHLORINE;CITRIC ACID;GLUCOSE;POTASSIUM;SODIUM] [Concomitant]
     Indication: ADRENAL INSUFFICIENCY
  9. SELOKENZOC [Concomitant]
     Active Substance: METOPROLOL SUCCINATE
     Indication: HYPERTENSION
     Dosage: 50 MG, DAILY
  10. CANCIDAS [Concomitant]
     Active Substance: CASPOFUNGIN ACETATE
     Indication: CANDIDA INFECTION
     Dosage: 70 MG LOADING DOSE
     Route: 042
     Dates: start: 20210605, end: 20210625

REACTIONS (6)
  - Abnormal behaviour [Recovered/Resolved]
  - Anxiety [Recovered/Resolved]
  - Panic attack [Recovered/Resolved]
  - Disorientation [Recovered/Resolved]
  - Aggression [Recovered/Resolved]
  - Confusional state [Recovered/Resolved]

NARRATIVE: CASE EVENT DATE: 20210708
